FAERS Safety Report 13530555 (Version 1)
Quarter: 2017Q2

REPORT INFORMATION
  Report Type: Spontaneous
  Country: US (occurrence: US)
  Receive Date: 20170509
  Receipt Date: 20170509
  Transmission Date: 20170830
  Serious: Yes (Other)
  Sender: FDA-Public Use
  Company Number: None

PATIENT
  Age: 6 Month
  Sex: Male
  Weight: 5.99 kg

DRUGS (1)
  1. DOCU LIQUID [Suspect]
     Active Substance: DOCUSATE SODIUM

REACTIONS (2)
  - Device related sepsis [None]
  - Burkholderia infection [None]

NARRATIVE: CASE EVENT DATE: 20170505
